FAERS Safety Report 22295245 (Version 1)
Quarter: 2023Q2

REPORT INFORMATION
  Report Type: Spontaneous
  Country: US (occurrence: None)
  Receive Date: 20230506
  Receipt Date: 20230506
  Transmission Date: 20230721
  Serious: Yes (Other)
  Sender: FDA-Public Use
  Company Number: None

PATIENT
  Age: 4 Year
  Sex: Male
  Weight: 18 kg

DRUGS (1)
  1. PREDNISONE [Suspect]
     Active Substance: PREDNISONE
     Indication: Hypersensitivity
     Dates: start: 20221228, end: 20230105

REACTIONS (3)
  - Adverse drug reaction [None]
  - Crying [None]
  - Irritability [None]

NARRATIVE: CASE EVENT DATE: 20221228
